FAERS Safety Report 9346634 (Version 1)
Quarter: 2013Q2

REPORT INFORMATION
  Report Type: Report from Study
  Country: CA (occurrence: CA)
  Receive Date: 20130613
  Receipt Date: 20130613
  Transmission Date: 20140414
  Serious: Yes (Hospitalization)
  Sender: FDA-Public Use
  Company Number: CA-JNJFOC-20121013864

PATIENT
  Age: 29 Year
  Sex: Female
  Weight: 84.1 kg

DRUGS (4)
  1. REMICADE [Suspect]
     Indication: CROHN^S DISEASE
     Route: 042
     Dates: start: 200906
  2. REMICADE [Suspect]
     Indication: CROHN^S DISEASE
     Route: 042
     Dates: start: 201204
  3. REMICADE [Suspect]
     Indication: CROHN^S DISEASE
     Dosage: POST PARTUM RELOAD
     Route: 042
     Dates: start: 2013
  4. IMURAN [Suspect]
     Indication: PRODUCT USED FOR UNKNOWN INDICATION
     Route: 048

REACTIONS (2)
  - Uterine hypotonus [Recovered/Resolved]
  - Exposure during pregnancy [Recovered/Resolved]
